FAERS Safety Report 15297518 (Version 1)
Quarter: 2018Q3

REPORT INFORMATION
  Report Type: Spontaneous
  Country: NG (occurrence: NG)
  Receive Date: 20180820
  Receipt Date: 20180820
  Transmission Date: 20181010
  Serious: Yes (Life-Threatening, Other)
  Sender: FDA-Public Use
  Company Number: PHHY2018NG074136

PATIENT
  Age: 22 Year
  Sex: Male

DRUGS (2)
  1. CARBAMAZEPINE. [Suspect]
     Active Substance: CARBAMAZEPINE
     Indication: PETIT MAL EPILEPSY
     Dosage: UNK
     Route: 065
  2. SODIUM VALPROATE [Concomitant]
     Active Substance: VALPROATE SODIUM
     Indication: FOCAL DYSCOGNITIVE SEIZURES
     Route: 065

REACTIONS (7)
  - Restlessness [Unknown]
  - Cognitive disorder [Unknown]
  - Therapy non-responder [Unknown]
  - Abnormal behaviour [Unknown]
  - Aggression [Unknown]
  - Loss of consciousness [Unknown]
  - Tonic clonic movements [Recovering/Resolving]
